FAERS Safety Report 11590599 (Version 1)
Quarter: 2015Q4

REPORT INFORMATION
  Report Type: Spontaneous
  Country: US (occurrence: US)
  Receive Date: 20151002
  Receipt Date: 20151002
  Transmission Date: 20160304
  Serious: Yes (Hospitalization, Other)
  Sender: FDA-Public Use
  Company Number: US-BAXALTA-2015BLT001923

PATIENT
  Age: 58 Year
  Sex: Female
  Weight: 82.5 kg

DRUGS (3)
  1. GAMMAGARD LIQUID [Suspect]
     Active Substance: HUMAN IMMUNOGLOBULIN G
     Dosage: 30 G, EVERY DAY FOR 3 DAYS
     Route: 042
     Dates: start: 20150808, end: 20150808
  2. GAMMAGARD LIQUID [Suspect]
     Active Substance: HUMAN IMMUNOGLOBULIN G
     Indication: CONGENITAL NEUROPATHY
     Dosage: UNK UNK, 1X A DAY, FOR 3 DAYS EVERY 3 WEEKS
     Route: 042
     Dates: start: 20110427
  3. GAMMAGARD LIQUID [Suspect]
     Active Substance: HUMAN IMMUNOGLOBULIN G
     Indication: OFF LABEL USE
     Dosage: 30 G, 1X A DAY, EVERY 3 DAYS
     Route: 042
     Dates: start: 20150818, end: 20150818

REACTIONS (3)
  - Meningitis aseptic [Recovered/Resolved]
  - Nausea [Recovered/Resolved]
  - Migraine [Recovered/Resolved]

NARRATIVE: CASE EVENT DATE: 20150818
